FAERS Safety Report 23656948 (Version 1)
Quarter: 2024Q1

REPORT INFORMATION
  Report Type: Spontaneous
  Country: IN (occurrence: IN)
  Receive Date: 20240321
  Receipt Date: 20240321
  Transmission Date: 20240410
  Serious: Yes (Other)
  Sender: FDA-Public Use
  Company Number: IN-002147023-NVSC2023IN280296

PATIENT
  Sex: Male

DRUGS (1)
  1. RANIBIZUMAB [Suspect]
     Active Substance: RANIBIZUMAB
     Indication: Retinal vein occlusion
     Dosage: UNK
     Route: 050

REACTIONS (4)
  - Retinal vein occlusion [Unknown]
  - Optic disc pit [Unknown]
  - Homocystinaemia [Unknown]
  - Dyslipidaemia [Unknown]
